FAERS Safety Report 7028830-0 (Version None)
Quarter: 2010Q3

REPORT INFORMATION
  Report Type: 
  Country: None (occurrence: None)
  Receive Date: 20100830
  Receipt Date: 20100819
  Transmission Date: 20110219
  Serious: Yes (Other)
  Sender: FDA-Public Use
  Company Number: US-145057

PATIENT
  Sex: Female

DRUGS (2)
  1. WINRHO [Suspect]
     Indication: IDIOPATHIC THROMBOCYTOPENIC PURPURA
     Dosage: (4420 ?G INTRAVENOUS (NOT OTHERWISE SPECIFIED))
     Route: 042
  2. BENADRYL [Concomitant]

REACTIONS (11)
  - ABDOMINAL PAIN UPPER [None]
  - ASTHENIA [None]
  - CHILLS [None]
  - EDUCATIONAL PROBLEM [None]
  - ERYTHEMA INFECTIOSUM [None]
  - FATIGUE [None]
  - HAEMOGLOBIN DECREASED [None]
  - HAEMOLYSIS [None]
  - IMPAIRED WORK ABILITY [None]
  - NAUSEA [None]
  - PYREXIA [None]
